FAERS Safety Report 7738736-7 (Version None)
Quarter: 2011Q3

REPORT INFORMATION
  Report Type: 
  Country: None (occurrence: None)
  Receive Date: 20110908
  Receipt Date: 20110831
  Transmission Date: 20111222
  Serious: No
  Sender: FDA-Public Use
  Company Number: US-PFIZER INC-2011203884

PATIENT
  Sex: Male
  Weight: 97.506 kg

DRUGS (1)
  1. VIAGRA [Suspect]
     Dosage: 0.5 MG, 20X A MONTH
     Route: 048
     Dates: start: 20100101

REACTIONS (1)
  - DYSPEPSIA [None]
